FAERS Safety Report 9937054 (Version 1)
Quarter: 2014Q1

REPORT INFORMATION
  Report Type: Spontaneous
  Country: US (occurrence: None)
  Receive Date: 20140122
  Receipt Date: 20140122
  Transmission Date: 20141002
  Serious: No
  Sender: FDA-Public Use
  Company Number: AP356-00285-SPO-US

PATIENT
  Age: 28 Year
  Sex: Female
  Weight: 88.64 kg

DRUGS (1)
  1. BELVIQ (LORCASERIN HYDROCHLORIDE) [Suspect]
     Indication: OBESITY
     Route: 048
     Dates: start: 20131008

REACTIONS (2)
  - Breast pain [None]
  - Lactation disorder [None]
